FAERS Safety Report 6573352-4 (Version None)
Quarter: 2010Q1

REPORT INFORMATION
  Report Type: 
  Country: None (occurrence: None)
  Receive Date: 20100208
  Receipt Date: 20100128
  Transmission Date: 20100710
  Serious: Yes (Disabling)
  Sender: FDA-Public Use
  Company Number: BR-ASTRAZENECA-2010SE04163

PATIENT
  Sex: Female

DRUGS (2)
  1. NEXIUM [Suspect]
     Indication: ULCER
     Route: 048
     Dates: start: 20070101, end: 20090101
  2. NEXIUM [Suspect]
     Indication: HERNIA
     Route: 048
     Dates: start: 20070101, end: 20090101

REACTIONS (2)
  - FALL [None]
  - UPPER LIMB FRACTURE [None]
